FAERS Safety Report 4364652-7 (Version None)
Quarter: 2004Q2

REPORT INFORMATION
  Report Type: 
  Country: None (occurrence: None)
  Receive Date: 20040521
  Receipt Date: 20040504
  Transmission Date: 20050107
  Serious: Yes (Life-Threatening, Other)
  Sender: FDA-Public Use
  Company Number: USA040566733

PATIENT
  Sex: Male

DRUGS (2)
  1. HUMALOG [Suspect]
     Indication: DIABETES MELLITUS INSULIN-DEPENDENT
     Dates: start: 20020101
  2. HUMULIN N [Suspect]
     Indication: DIABETES MELLITUS INSULIN-DEPENDENT
     Dates: end: 20020101

REACTIONS (14)
  - ANGINA PECTORIS [None]
  - ARTERIAL OCCLUSIVE DISEASE [None]
  - BENIGN PROSTATIC HYPERPLASIA [None]
  - BLOOD URINE [None]
  - CORONARY ARTERY SURGERY [None]
  - DIABETES MELLITUS INADEQUATE CONTROL [None]
  - HORMONE LEVEL ABNORMAL [None]
  - INSOMNIA [None]
  - INSULIN RESISTANCE [None]
  - NOCTURIA [None]
  - PAIN IN EXTREMITY [None]
  - SENSORY DISTURBANCE [None]
  - SPONDYLITIS [None]
  - TRANSIENT ISCHAEMIC ATTACK [None]
